FAERS Safety Report 22395108 (Version 2)
Quarter: 2023Q2

REPORT INFORMATION
  Report Type: Report from Study
  Country: US (occurrence: US)
  Receive Date: 20230601
  Receipt Date: 20230630
  Transmission Date: 20230722
  Serious: Yes (Hospitalization)
  Sender: FDA-Public Use
  Company Number: US-JAZZ PHARMACEUTICALS-2023-US-005306

PATIENT
  Sex: Female
  Weight: 120.18 kg

DRUGS (2)
  1. EPIDIOLEX [Suspect]
     Active Substance: CANNABIDIOL
     Indication: Seizure
     Dosage: 10 MILLILITER, BID
     Dates: start: 20230303
  2. EPIDIOLEX [Suspect]
     Active Substance: CANNABIDIOL
     Dosage: 12 MILLILITER, BID
     Route: 048

REACTIONS (3)
  - Hospitalisation [Recovered/Resolved]
  - Eczema [Unknown]
  - Weight increased [Unknown]
